FAERS Safety Report 25133822 (Version 5)
Quarter: 2025Q4

REPORT INFORMATION
  Report Type: Spontaneous
  Country: JP (occurrence: JP)
  Receive Date: 20250328
  Receipt Date: 20251218
  Transmission Date: 20260118
  Serious: Yes (Other)
  Sender: UCB
  Company Number: JP-UCBJ-CD202503980UCBPHAPROD

PATIENT
  Age: 29 Year
  Weight: 32 kg

DRUGS (11)
  1. FINTEPLA [Suspect]
     Active Substance: FENFLURAMINE
     Indication: Lennox-Gastaut syndrome
     Dosage: 0.5 MILLILITER, 2X/DAY (BID)
     Route: 061
  2. FINTEPLA [Suspect]
     Active Substance: FENFLURAMINE
     Dosage: 1.2 MILLILITER, DAILY
     Route: 061
  3. FINTEPLA [Suspect]
     Active Substance: FENFLURAMINE
     Dosage: 1.8 MILLILITER, DAILY
     Route: 061
  4. LEVETIRACETAM [Concomitant]
     Active Substance: LEVETIRACETAM
     Indication: Lennox-Gastaut syndrome
     Dosage: 250 MILLIGRAM
     Route: 061
  5. PHENOBARBITAL [Concomitant]
     Active Substance: PHENOBARBITAL
     Indication: Lennox-Gastaut syndrome
     Dosage: 50 MILLIGRAM
     Route: 061
  6. LAMICTAL [Concomitant]
     Active Substance: LAMOTRIGINE
     Indication: Lennox-Gastaut syndrome
     Dosage: 50 MILLIGRAM
     Route: 061
  7. DANTRIUM [Concomitant]
     Active Substance: DANTROLENE SODIUM
     Indication: Paralysis
     Dosage: 25 MILLIGRAM, ONCE DAILY (QD)
     Route: 061
  8. DIMETHICONE [Concomitant]
     Active Substance: DIMETHICONE
     Indication: Abdominal distension
     Dosage: 40 MILLIGRAM
     Route: 061
  9. URAPIDIL [Concomitant]
     Active Substance: URAPIDIL
     Indication: Dysuria
     Dosage: 15 MILLIGRAM, ONCE DAILY (QD)
     Route: 061
  10. SODIUM PICOSULFATE [Concomitant]
     Active Substance: SODIUM PICOSULFATE
     Indication: Constipation
     Dosage: UNK
     Route: 061
  11. DAYVIGO [Concomitant]
     Active Substance: LEMBOREXANT
     Indication: Insomnia
     Dosage: UNK
     Route: 061

REACTIONS (3)
  - Epilepsy [Not Recovered/Not Resolved]
  - Prescribed underdose [Unknown]
  - Off label use [Unknown]
